FAERS Safety Report 20521574 (Version 1)
Quarter: 2022Q1

REPORT INFORMATION
  Report Type: Spontaneous
  Country: US (occurrence: US)
  Receive Date: 20220226
  Receipt Date: 20220226
  Transmission Date: 20220423
  Serious: No
  Sender: FDA-Public Use
  Company Number: US-AMNEAL PHARMACEUTICALS-2021-AMRX-01890

PATIENT
  Sex: Female

DRUGS (1)
  1. EMVERM [Suspect]
     Active Substance: MEBENDAZOLE
     Indication: Infection parasitic
     Dosage: 1 TABLETS, 2 /DAY
     Route: 048

REACTIONS (2)
  - Pain [Unknown]
  - Therapy cessation [Unknown]
